FAERS Safety Report 11206024 (Version 1)
Quarter: 2015Q2

REPORT INFORMATION
  Report Type: Spontaneous
  Country: US (occurrence: US)
  Receive Date: 20150622
  Receipt Date: 20150622
  Transmission Date: 20150821
  Serious: Yes (Hospitalization, Other)
  Sender: FDA-Public Use
  Company Number: US-MPIJNJ-2011-02097

PATIENT
  Age: 51 Year
  Sex: Male

DRUGS (1)
  1. VELCADE [Suspect]
     Active Substance: BORTEZOMIB
     Indication: PLASMA CELL MYELOMA
     Dosage: UNK
     Dates: start: 201101

REACTIONS (6)
  - Acute kidney injury [Unknown]
  - Mental status changes [Unknown]
  - Hypercalcaemia [Unknown]
  - Musculoskeletal pain [Unknown]
  - Anaemia [Unknown]
  - Haemophilus infection [Unknown]

NARRATIVE: CASE EVENT DATE: 201102
